FAERS Safety Report 9518358 (Version 1)
Quarter: 2013Q3

REPORT INFORMATION
  Report Type: Spontaneous
  Country: GB (occurrence: None)
  Receive Date: 20130910
  Receipt Date: 20130910
  Transmission Date: 20140515
  Serious: Yes (Death, Hospitalization)
  Sender: FDA-Public Use
  Company Number: GER/UKI/13/0034411

PATIENT
  Age: 82 Year
  Sex: Male
  Weight: 68 kg

DRUGS (5)
  1. OMEPRAZOLE (OMEPRAZOLE) [Suspect]
     Indication: HIATUS HERNIA
     Dosage: 20 MG, ORAL
     Route: 048
     Dates: start: 20121231, end: 20130509
  2. ASPIRIN (ACETYLSALICYLIC ACID) [Concomitant]
  3. DIGOXIN (DIGOXIN) [Concomitant]
  4. LISINOPRIL (LISINOPRIL) [Concomitant]
  5. SIMVASTATIN (SIMVASTATIN) [Concomitant]

REACTIONS (2)
  - Hypomagnesaemia [None]
  - Blood calcium decreased [None]
